FAERS Safety Report 9209467 (Version 1)
Quarter: 2013Q2

REPORT INFORMATION
  Report Type: Spontaneous
  Country: US (occurrence: US)
  Receive Date: 20130404
  Receipt Date: 20130404
  Transmission Date: 20140414
  Serious: Yes (Other)
  Sender: FDA-Public Use
  Company Number: US-UCBSA-082102

PATIENT
  Age: 43 Year
  Sex: Female

DRUGS (1)
  1. OMEPRAZOLE [Suspect]
     Indication: GASTROOESOPHAGEAL REFLUX DISEASE
     Dosage: 40MG; (UNSPECIFIED IF IT WAS TOTAL DAILY DOSE OR DOSE STRENGTH)

REACTIONS (2)
  - Urticaria [Unknown]
  - Product quality issue [Unknown]
